FAERS Safety Report 6539125-3 (Version None)
Quarter: 2010Q1

REPORT INFORMATION
  Report Type: 
  Country: None (occurrence: None)
  Receive Date: 20100115
  Receipt Date: 20100114
  Transmission Date: 20100710
  Serious: Yes (Death)
  Sender: FDA-Public Use
  Company Number: PHHY2009BR47999

PATIENT
  Sex: Female

DRUGS (3)
  1. DIOVAN [Suspect]
     Dosage: 80 MG, UNK
  2. CLOPIDOGREL [Suspect]
     Dosage: UNK
  3. LASIX [Suspect]
     Dosage: UNK

REACTIONS (1)
  - DEATH [None]
